FAERS Safety Report 6383029-6 (Version None)
Quarter: 2009Q3

REPORT INFORMATION
  Report Type: 
  Country: None (occurrence: None)
  Receive Date: 20090924
  Receipt Date: 20090601
  Transmission Date: 20100115
  Serious: No
  Sender: FDA-Public Use
  Company Number: US-CVT-090332

PATIENT
  Sex: Male

DRUGS (1)
  1. RANEXA          (RANOLAZINE) FILM-COATED [Suspect]
     Indication: DRUG USE FOR UNKNOWN INDICATION

REACTIONS (2)
  - OCULAR DISCOMFORT [None]
  - VISION BLURRED [None]
